FAERS Safety Report 5760074-2 (Version None)
Quarter: 2008Q2

REPORT INFORMATION
  Report Type: 
  Country: None (occurrence: None)
  Receive Date: 20080605
  Receipt Date: 20080530
  Transmission Date: 20081010
  Serious: Yes (Hospitalization)
  Sender: FDA-Public Use
  Company Number: GB-WYE-G01621108

PATIENT
  Sex: Female

DRUGS (4)
  1. EFFEXOR XR [Suspect]
     Route: 048
     Dates: start: 20071212
  2. NITRAZEPAM [Concomitant]
     Dosage: UNKNOWN
     Route: 048
  3. ACETAMINOPHEN W/ CODEINE [Concomitant]
     Indication: PAIN
     Dosage: AS NEEDED
  4. LORAZEPAM [Concomitant]
     Dosage: UNKNOWN

REACTIONS (1)
  - URINARY TRACT INFECTION [None]
